FAERS Safety Report 18522205 (Version 1)
Quarter: 2020Q4

REPORT INFORMATION
  Report Type: Spontaneous
  Country: US (occurrence: US)
  Receive Date: 20201119
  Receipt Date: 20201119
  Transmission Date: 20210114
  Serious: Yes (Life-Threatening)
  Sender: FDA-Public Use
  Company Number: None

PATIENT
  Age: 31 Year
  Sex: Male
  Weight: 92.99 kg

DRUGS (9)
  1. LANTUS [Suspect]
     Active Substance: INSULIN GLARGINE
  2. DEXCOM [Concomitant]
  3. LISINOPRIL. [Concomitant]
     Active Substance: LISINOPRIL
  4. ATORVASTATIN [Concomitant]
     Active Substance: ATORVASTATIN
  5. OXYBUTYNIN. [Concomitant]
     Active Substance: OXYBUTYNIN CHLORIDE
  6. TANDEM TSLIM X2 [Concomitant]
  7. PROPRANOLOL [Concomitant]
     Active Substance: PROPRANOLOL HYDROCHLORIDE
  8. HUMALOG [Concomitant]
     Active Substance: INSULIN LISPRO
  9. VITAMIN C [Concomitant]
     Active Substance: ASCORBIC ACID

REACTIONS (3)
  - Blood glucose increased [None]
  - Drug dose omission by device [None]
  - Device malfunction [None]

NARRATIVE: CASE EVENT DATE: 20201118
